FAERS Safety Report 22282924 (Version 1)
Quarter: 2023Q2

REPORT INFORMATION
  Report Type: Spontaneous
  Country: OM (occurrence: OM)
  Receive Date: 20230504
  Receipt Date: 20230504
  Transmission Date: 20230721
  Serious: Yes (Other)
  Sender: FDA-Public Use
  Company Number: OM-Accord-356414

PATIENT
  Age: 28 Year
  Sex: Male

DRUGS (2)
  1. CISPLATIN [Suspect]
     Active Substance: CISPLATIN
     Indication: Renal cell carcinoma recurrent
     Dosage: RECEIVED 6 CYCLES
     Dates: start: 2018
  2. GEMCITABINE [Suspect]
     Active Substance: GEMCITABINE
     Indication: Renal cell carcinoma recurrent
     Dosage: RECEIVED 6 CYCLES
     Dates: start: 2018

REACTIONS (1)
  - Cytopenia [Unknown]
